FAERS Safety Report 9054316 (Version 3)
Quarter: 2013Q1

REPORT INFORMATION
  Report Type: Spontaneous
  Country: JP (occurrence: JP)
  Receive Date: 20130208
  Receipt Date: 20130319
  Transmission Date: 20140127
  Serious: Yes (Other)
  Sender: FDA-Public Use
  Company Number: JP-PFIZER INC-2013051314

PATIENT
  Age: 75 Year
  Sex: Female

DRUGS (1)
  1. LYRICA [Suspect]
     Indication: PAIN IN EXTREMITY
     Dosage: 150 MG/DAY
     Route: 048
     Dates: start: 201205

REACTIONS (3)
  - Eye disorder [Recovered/Resolved]
  - Ocular discomfort [Recovered/Resolved]
  - Photopsia [Recovered/Resolved]
